FAERS Safety Report 14454773 (Version 2)
Quarter: 2018Q3

REPORT INFORMATION
  Report Type: Spontaneous
  Country: US (occurrence: US)
  Receive Date: 20180129
  Receipt Date: 20180706
  Transmission Date: 20181010
  Serious: Yes (Other)
  Sender: FDA-Public Use
  Company Number: US-DSJP-DSU-2017-156837

PATIENT

DRUGS (1)
  1. BENICAR [Suspect]
     Active Substance: OLMESARTAN MEDOXOMIL
     Indication: HYPERTENSION
     Dosage: 20 MG, QD
     Route: 048
     Dates: start: 20051109

REACTIONS (4)
  - Weight decreased [Unknown]
  - Colon cancer stage I [Not Recovered/Not Resolved]
  - Irritable bowel syndrome [Recovering/Resolving]
  - Polyp [Recovered/Resolved]

NARRATIVE: CASE EVENT DATE: 20140923
